FAERS Safety Report 6221162-X (Version None)
Quarter: 2009Q2

REPORT INFORMATION
  Report Type: 
  Country: None (occurrence: None)
  Receive Date: 20090608
  Receipt Date: 20090526
  Transmission Date: 20091009
  Serious: Yes (Other)
  Sender: FDA-Public Use
  Company Number: DE-GDP-09405618

PATIENT
  Sex: Male

DRUGS (3)
  1. ALA 20% (AMINOLEVULINIC ACID) [Suspect]
     Indication: ACTINIC KERATOSIS
     Dosage: TOPICAL
     Route: 061
     Dates: start: 20060110
  2. DMSO (DIMETHYL SULFOXIDE) [Suspect]
     Dosage: TOPICAL
     Route: 061
     Dates: start: 20060110
  3. DOLO DEMOTHERM AU DMSO [Concomitant]

REACTIONS (1)
  - CEREBROVASCULAR ACCIDENT [None]
